FAERS Safety Report 16283041 (Version 4)
Quarter: 2019Q3

REPORT INFORMATION
  Report Type: Report from Study
  Country: US (occurrence: US)
  Receive Date: 20190507
  Receipt Date: 20190916
  Transmission Date: 20191004
  Serious: Yes (Life-Threatening, Hospitalization)
  Sender: FDA-Public Use
  Company Number: PHHO2019US004847

PATIENT
  Age: 62 Year
  Sex: Male
  Weight: 94.1 kg

DRUGS (20)
  1. GSK2118436 [Suspect]
     Active Substance: DABRAFENIB
     Dosage: 300 MG, UNK
     Route: 048
     Dates: start: 20180808, end: 20180813
  2. GSK2118436 [Suspect]
     Active Substance: DABRAFENIB
     Dosage: UNK
     Route: 048
     Dates: start: 20180827, end: 20180923
  3. GSK1120212 [Suspect]
     Active Substance: TRAMETINIB
     Indication: HAIRY CELL LEUKAEMIA
     Dosage: 2 MG, UNK
     Route: 048
     Dates: start: 20180510, end: 20180603
  4. GSK1120212 [Suspect]
     Active Substance: TRAMETINIB
     Dosage: 2 MG, UNK
     Route: 048
     Dates: start: 20180702, end: 20180826
  5. GSK1120212 [Suspect]
     Active Substance: TRAMETINIB
     Dosage: 2 UNK, UNK
     Route: 048
     Dates: start: 20180827, end: 20180923
  6. GSK1120212 [Suspect]
     Active Substance: TRAMETINIB
     Dosage: 2 MG
     Route: 048
     Dates: start: 20181119, end: 20181216
  7. GSK1120212 [Suspect]
     Active Substance: TRAMETINIB
     Dosage: 2 MG, UNK
     Route: 048
     Dates: start: 20180604, end: 20180701
  8. GSK1120212 [Suspect]
     Active Substance: TRAMETINIB
     Dosage: 2 MG, UNK
     Route: 048
     Dates: start: 20181022, end: 20181118
  9. GSK1120212 [Suspect]
     Active Substance: TRAMETINIB
     Dosage: 2 MG
     Route: 048
     Dates: start: 20181217, end: 20190113
  10. GSK1120212 [Suspect]
     Active Substance: TRAMETINIB
     Dosage: 2 MG, UNK
     Route: 048
     Dates: start: 20190114, end: 20190210
  11. GSK2118436 [Suspect]
     Active Substance: DABRAFENIB
     Dosage: UNK
     Route: 048
     Dates: start: 20180805, end: 20180807
  12. GSK2118436 [Suspect]
     Active Substance: DABRAFENIB
     Dosage: 300 MG, UNK
     Route: 048
     Dates: start: 20180702, end: 20180804
  13. GSK2118436 [Suspect]
     Active Substance: DABRAFENIB
     Dosage: 150 MG, UNK
     Route: 048
     Dates: start: 20180814, end: 20180814
  14. GSK1120212 [Suspect]
     Active Substance: TRAMETINIB
     Dosage: 2 MG, UNK
     Route: 048
     Dates: start: 20180924, end: 20181021
  15. GSK1120212 [Suspect]
     Active Substance: TRAMETINIB
     Dosage: 2 MG
     Route: 048
     Dates: start: 20190211, end: 20190310
  16. GSK2118436 [Suspect]
     Active Substance: DABRAFENIB
     Dosage: 300 MG, UNK
     Route: 048
     Dates: start: 20180604, end: 20180701
  17. GSK2118436 [Suspect]
     Active Substance: DABRAFENIB
     Dosage: UNK
     Route: 048
     Dates: start: 20180815, end: 20180826
  18. GSK2118436 [Suspect]
     Active Substance: DABRAFENIB
     Dosage: 300 MG, UNK
     Route: 048
     Dates: start: 20180924, end: 20180925
  19. GSK1120212 [Suspect]
     Active Substance: TRAMETINIB
     Dosage: 2 MG
     Route: 048
     Dates: start: 20190311, end: 20190407
  20. GSK2118436 [Suspect]
     Active Substance: DABRAFENIB
     Indication: HAIRY CELL LEUKAEMIA
     Dosage: 300 MG, UNK
     Route: 048
     Dates: start: 20180510, end: 20180603

REACTIONS (1)
  - Guillain-Barre syndrome [Recovering/Resolving]

NARRATIVE: CASE EVENT DATE: 20190426
